FAERS Safety Report 22127456 (Version 5)
Quarter: 2023Q2

REPORT INFORMATION
  Report Type: Report from Study
  Country: US (occurrence: US)
  Receive Date: 20230322
  Receipt Date: 20230404
  Transmission Date: 20230721
  Serious: Yes (Hospitalization)
  Sender: FDA-Public Use
  Company Number: US-ABBVIE-4699072

PATIENT
  Sex: Male

DRUGS (12)
  1. VENCLEXTA [Suspect]
     Active Substance: VENETOCLAX
     Indication: Acute myeloid leukaemia
     Dosage: FORM STRENGTH: 100 MILLIGRAM
     Route: 048
  2. TYLENOL [Concomitant]
     Active Substance: ACETAMINOPHEN
     Indication: Product used for unknown indication
     Dosage: TAKE 650MG BY MOUTH EVERY 6 HOURS AS NEEDED, FORM STRENGTH: 325 MILLIGRAM
     Route: 048
  3. ZOVIRAX [Concomitant]
     Active Substance: ACYCLOVIR
     Indication: Product used for unknown indication
     Dosage: TAKE 2 TABLET BY MOUTH ONCE DAILY
     Route: 048
  4. HYDRODIURIL [Concomitant]
     Active Substance: HYDROCHLOROTHIAZIDE
     Indication: Product used for unknown indication
     Dosage: FORM STRENGTH: 25 MILIGRAM
     Route: 048
  5. CIPRO [Concomitant]
     Active Substance: CIPROFLOXACIN HYDROCHLORIDE
     Indication: Product used for unknown indication
     Dosage: TAKE 500MG BY MOUTH EVERY 12 HOURS, FORM STRENGTH: 500MILLIGRAM
     Route: 048
  6. DRYSEC [Concomitant]
     Indication: Product used for unknown indication
     Dosage: TIME INTERVAL: 0.33333333 DAYS: 100MG TABLET DELAYED RELEASE
     Route: 048
  7. FLOMAX [Concomitant]
     Active Substance: TAMSULOSIN HYDROCHLORIDE
     Indication: Product used for unknown indication
     Dosage: TAKE 0.4MG BY MOUTH ONCE DAILY, FORM STRENGTH: 0.4 MILLIGRAM
     Route: 048
  8. PRINIVIL [Concomitant]
     Active Substance: LISINOPRIL
     Indication: Product used for unknown indication
     Dosage: FORM STRENGTH: 40 MILLLIGRAM
     Route: 048
  9. NOXAFIL [Concomitant]
     Active Substance: POSACONAZOLE
     Indication: Product used for unknown indication
     Dosage: TAKE 3 TABLET BY MOUTH ONCE DAILY, (DR\EC), FORM STRENGTH: 100 MILLIGRAM
     Route: 048
  10. PRILOSEC [Concomitant]
     Active Substance: OMEPRAZOLE MAGNESIUM
     Indication: Product used for unknown indication
     Dosage: ( DR/EC), TAKE 20MG BY MOUTH DAILY BEFORE BREAKFAST, FORM STRENGTH: 20 MILLIGRAM
     Route: 048
  11. NORCO [Concomitant]
     Active Substance: ACETAMINOPHEN\HYDROCODONE BITARTRATE
     Indication: Product used for unknown indication
     Dosage: 5-325MG TABLET
     Route: 048
  12. LEVAQUIN [Concomitant]
     Active Substance: LEVOFLOXACIN
     Indication: Infection prophylaxis
     Dosage: TAKE 1 TABLET BY MOUTH ONCE DAILY, FORM STRENGTH: 500 MILLIGRAM
     Route: 048

REACTIONS (4)
  - Internal haemorrhage [Unknown]
  - Neoplasm malignant [Unknown]
  - Memory impairment [Unknown]
  - Laboratory test abnormal [Unknown]
